FAERS Safety Report 7907527-6 (Version None)
Quarter: 2011Q4

REPORT INFORMATION
  Report Type: 
  Country: None (occurrence: None)
  Receive Date: 20111110
  Receipt Date: 20111031
  Transmission Date: 20120403
  Serious: Yes (Hospitalization, Other)
  Sender: FDA-Public Use
  Company Number: PHHY2011JP84121

PATIENT
  Age: 67 Year
  Sex: Male

DRUGS (2)
  1. ZOMETA [Suspect]
     Indication: METASTASES TO BONE
     Dosage: 4 MG, UNK
     Route: 042
  2. DOCETAXEL [Suspect]
     Dosage: UNK
     Dates: start: 20110501

REACTIONS (8)
  - PAIN IN JAW [None]
  - EXPOSED BONE IN JAW [None]
  - BRONCHOSTENOSIS [None]
  - PANCYTOPENIA [None]
  - OSTEONECROSIS OF JAW [None]
  - CELLULITIS PHARYNGEAL [None]
  - RESPIRATORY DEPRESSION [None]
  - PHARYNGEAL ABSCESS [None]
